FAERS Safety Report 23459365 (Version 2)
Quarter: 2024Q1

REPORT INFORMATION
  Report Type: Spontaneous
  Country: US (occurrence: US)
  Receive Date: 20240131
  Receipt Date: 20240222
  Transmission Date: 20240410
  Serious: No
  Sender: FDA-Public Use
  Company Number: US-BAUSCHBL-2024BNL000885

PATIENT
  Age: 81 Year
  Sex: Male
  Weight: 77.56 kg

DRUGS (4)
  1. DORZOLAMIDE HYDROCHLORIDE AND TIMOLOL MALEATE OPHTHALMIC SOLUTION [Suspect]
     Active Substance: DORZOLAMIDE HYDROCHLORIDE\TIMOLOL MALEATE
     Indication: Eye injury
     Dosage: DORZOLAMIDE HYDROCHLORIDE/TIMOLOL MALEATE OPHTHALMIC SOLUTION 2%, 0.5%?STARTED COUPLE OF YEARS AGO
     Route: 047
  2. ARTIFICIAL TEARS (UMBRELLA TERM) [Concomitant]
     Indication: Product used for unknown indication
     Route: 065
  3. WARFARIN [Concomitant]
     Active Substance: WARFARIN
     Indication: Product used for unknown indication
     Route: 065
  4. CARVEDILOL [Concomitant]
     Active Substance: CARVEDILOL
     Indication: Product used for unknown indication
     Route: 065

REACTIONS (1)
  - Administration site pain [Unknown]
